FAERS Safety Report 25126737 (Version 2)
Quarter: 2025Q4

REPORT INFORMATION
  Report Type: Spontaneous
  Country: US (occurrence: US)
  Receive Date: 20250327
  Receipt Date: 20251110
  Transmission Date: 20260118
  Serious: Yes (Other)
  Sender: COOPERSURGICAL
  Company Number: US-COOPERSURGICAL, INC.-2025CPS002042

PATIENT
  Age: 29 Year
  Sex: Female
  Weight: 120.18 kg

DRUGS (2)
  1. PARAGARD T 380A [Suspect]
     Active Substance: COPPER
     Indication: Contraception
     Dosage: UNK
     Route: 015
     Dates: start: 20161004
  2. LEVOTHYROXINE [Concomitant]
     Active Substance: LEVOTHYROXINE
     Dosage: UNK
     Dates: start: 201303

REACTIONS (21)
  - Reproductive complication associated with device [Unknown]
  - Uterine injury [Not Recovered/Not Resolved]
  - Subchorionic haematoma [Recovered/Resolved]
  - Surgery [Recovered/Resolved]
  - Uterine polyp [Unknown]
  - Uterine polypectomy [Recovered/Resolved]
  - Chorioamniotic separation [Unknown]
  - Oligohydramnios [Unknown]
  - Device breakage [Recovered/Resolved]
  - Foreign body in urogenital tract [Recovered/Resolved]
  - Complication of device removal [Recovered/Resolved]
  - Embedded device [Recovered/Resolved]
  - Vaginal haemorrhage [Recovered/Resolved]
  - Generalised anxiety disorder [Not Recovered/Not Resolved]
  - Stress [Not Recovered/Not Resolved]
  - Iron deficiency anaemia [Unknown]
  - Heavy menstrual bleeding [Recovered/Resolved]
  - Vaginal infection [Unknown]
  - Vulvovaginal candidiasis [Unknown]
  - Abnormal uterine bleeding [Unknown]
  - Muscle spasms [Unknown]

NARRATIVE: CASE EVENT DATE: 20161001
